FAERS Safety Report 8542503-4 (Version None)
Quarter: 2012Q3

REPORT INFORMATION
  Report Type: 
  Country: None (occurrence: None)
  Receive Date: 20120726
  Receipt Date: 20110913
  Transmission Date: 20120928
  Serious: Yes (Other)
  Sender: FDA-Public Use
  Company Number: US-ASTRAZENECA-2011SE44202

PATIENT
  Age: 34 Year
  Sex: Male
  Weight: 55.1 kg

DRUGS (2)
  1. SEROQUEL XR [Suspect]
     Indication: BIPOLAR DISORDER
     Route: 048
     Dates: start: 20110501, end: 20110701
  2. CYMBALTA [Concomitant]

REACTIONS (4)
  - NIGHTMARE [None]
  - FATIGUE [None]
  - ABNORMAL DREAMS [None]
  - GASTROOESOPHAGEAL REFLUX DISEASE [None]
